FAERS Safety Report 17706717 (Version 2)
Quarter: 2020Q2

REPORT INFORMATION
  Report Type: Spontaneous
  Country: NL (occurrence: NL)
  Receive Date: 20200424
  Receipt Date: 20200506
  Transmission Date: 20200714
  Serious: Yes (Death, Hospitalization, Other)
  Sender: FDA-Public Use
  Company Number: NL-BAXTER-2020BAX008633

PATIENT
  Sex: Female

DRUGS (12)
  1. PREDNISONE. [Concomitant]
     Active Substance: PREDNISONE
     Indication: THYMOMA MALIGNANT
     Dosage: 20 MG
     Route: 065
  2. PREDNISONE. [Concomitant]
     Active Substance: PREDNISONE
     Indication: NEOPLASM PROGRESSION
     Route: 065
  3. VINCRISTINE SULFATE. [Concomitant]
     Active Substance: VINCRISTINE SULFATE
     Indication: NEOPLASM PROGRESSION
     Route: 065
  4. CYCLOPHOSPHAMIDE. [Concomitant]
     Active Substance: CYCLOPHOSPHAMIDE
     Indication: THYMOMA MALIGNANT
  5. MITOMYCIN. [Concomitant]
     Active Substance: MITOMYCIN
     Indication: THYMOMA MALIGNANT
     Route: 065
  6. MITOMYCIN. [Concomitant]
     Active Substance: MITOMYCIN
     Indication: NEOPLASM PROGRESSION
  7. CYCLOPHOSPHAMIDE. [Concomitant]
     Active Substance: CYCLOPHOSPHAMIDE
     Indication: NEOPLASM PROGRESSION
     Route: 065
  8. PROCARBAZINE [Concomitant]
     Active Substance: PROCARBAZINE
     Indication: NEOPLASM PROGRESSION
     Route: 065
  9. PROCARBAZINE [Concomitant]
     Active Substance: PROCARBAZINE
     Indication: THYMOMA MALIGNANT
  10. PREDNISONE. [Concomitant]
     Active Substance: PREDNISONE
     Indication: SYSTEMIC LUPUS ERYTHEMATOSUS
     Dosage: REDUCING DOSES
     Route: 065
  11. VINCRISTINE SULFATE. [Concomitant]
     Active Substance: VINCRISTINE SULFATE
     Indication: THYMOMA MALIGNANT
  12. DOXIL [Suspect]
     Active Substance: DOXORUBICIN HYDROCHLORIDE
     Indication: THYMOMA MALIGNANT
     Route: 065

REACTIONS (9)
  - Pyrexia [Fatal]
  - Respiratory moniliasis [Unknown]
  - Interstitial lung disease [Fatal]
  - Pharyngitis [Fatal]
  - Cushingoid [Unknown]
  - Pneumocystis jirovecii infection [Fatal]
  - Cardiac infection [Fatal]
  - Pneumonia staphylococcal [Fatal]
  - Kidney infection [Fatal]
